FAERS Safety Report 4616114-7 (Version None)
Quarter: 2005Q1

REPORT INFORMATION
  Report Type: 
  Country: None (occurrence: None)
  Receive Date: 20050323
  Receipt Date: 20050311
  Transmission Date: 20050727
  Serious: Yes (Hospitalization)
  Sender: FDA-Public Use
  Company Number: US-JNJFOC-20040404084

PATIENT
  Sex: Male
  Weight: 103.87 kg

DRUGS (15)
  1. DURAGESIC-100 [Suspect]
     Route: 062
     Dates: start: 20030829
  2. DURAGESIC-100 [Suspect]
     Route: 062
     Dates: start: 20030829
  3. VICODIN [Suspect]
     Route: 049
  4. VICODIN [Suspect]
     Indication: PAIN
     Route: 049
  5. CHLORDIAZEPOXIDE [Concomitant]
     Indication: DRUG USE FOR UNKNOWN INDICATION
  6. AMIODARONE [Concomitant]
  7. CLONIDINE [Concomitant]
  8. COUMADIN [Concomitant]
  9. DIGOXIN [Concomitant]
  10. NORVASC [Concomitant]
  11. PRAVACHOL [Concomitant]
  12. RESTORIL [Concomitant]
  13. METOPROLOL TARTRATE [Concomitant]
  14. ZANTAC [Concomitant]
  15. RESTORIL [Concomitant]

REACTIONS (19)
  - ACUTE RESPIRATORY FAILURE [None]
  - ADJUSTMENT DISORDER WITH DEPRESSED MOOD [None]
  - ANAEMIA [None]
  - ASPIRATION [None]
  - CARDIAC FAILURE CONGESTIVE [None]
  - CHRONIC OBSTRUCTIVE PULMONARY DISEASE [None]
  - CONVULSION [None]
  - DRUG DEPENDENCE [None]
  - FALL [None]
  - GENERALISED OEDEMA [None]
  - HYPERCAPNIA [None]
  - INFECTION [None]
  - MENTAL STATUS CHANGES [None]
  - NAUSEA [None]
  - OVERDOSE [None]
  - SEDATION [None]
  - SINUSITIS [None]
  - TOXIC INDUCED ENCEPHALOPATHY [None]
  - TREMOR [None]
